FAERS Safety Report 4974754-X (Version None)
Quarter: 2006Q2

REPORT INFORMATION
  Report Type: 
  Country: None (occurrence: None)
  Receive Date: 20060417
  Receipt Date: 20060411
  Transmission Date: 20061013
  Serious: Yes (Other)
  Sender: FDA-Public Use
  Company Number: NL-MERCK-0604NLD00006

PATIENT

DRUGS (2)
  1. FOSAMAX PLUS D [Suspect]
     Route: 048
  2. PREDNISONE [Concomitant]
     Route: 065

REACTIONS (1)
  - PANCREATITIS [None]
